FAERS Safety Report 7033666-0 (Version None)
Quarter: 2010Q4

REPORT INFORMATION
  Report Type: 
  Country: None (occurrence: None)
  Receive Date: 20101007
  Receipt Date: 20100825
  Transmission Date: 20110411
  Serious: Yes (Death, Other)
  Sender: FDA-Public Use
  Company Number: US-BAXTER-2010BH003354

PATIENT
  Age: 63 Year
  Sex: Male
  Weight: 57 kg

DRUGS (40)
  1. HEPARIN SODIUM INJECTION [Suspect]
     Indication: HAEMODIALYSIS
     Route: 042
     Dates: start: 20070901, end: 20081001
  2. HEPARIN SODIUM INJECTION [Suspect]
     Indication: PROPHYLAXIS
     Route: 042
     Dates: start: 20070901, end: 20081001
  3. HEPARIN SODIUM INJECTION [Suspect]
     Route: 058
     Dates: start: 20081027
  4. HEPARIN SODIUM INJECTION [Suspect]
     Route: 058
     Dates: start: 20081027
  5. HEPARIN SODIUM INJECTION [Suspect]
     Route: 040
     Dates: start: 20081029, end: 20081029
  6. HEPARIN SODIUM INJECTION [Suspect]
     Route: 040
     Dates: start: 20081029, end: 20081029
  7. HEPARIN SODIUM INJECTION [Suspect]
     Route: 042
     Dates: start: 20081029, end: 20081029
  8. HEPARIN SODIUM INJECTION [Suspect]
     Route: 042
     Dates: start: 20081029, end: 20081029
  9. HEPARIN SODIUM INJECTION [Suspect]
     Route: 040
     Dates: start: 20081101, end: 20081101
  10. HEPARIN SODIUM INJECTION [Suspect]
     Route: 040
     Dates: start: 20081101, end: 20081101
  11. HEPARIN SODIUM INJECTION [Suspect]
     Route: 042
     Dates: start: 20081101, end: 20081101
  12. HEPARIN SODIUM INJECTION [Suspect]
     Route: 042
     Dates: start: 20081101, end: 20081101
  13. HEPARIN SODIUM 5,000 UNITS IN DEXTROSE 5% [Suspect]
     Indication: PULMONARY EMBOLISM
     Route: 042
     Dates: start: 20070901, end: 20070902
  14. HEPARIN SODIUM 5,000 UNITS IN DEXTROSE 5% [Suspect]
     Indication: ATRIAL FIBRILLATION
     Route: 042
     Dates: start: 20070901, end: 20070902
  15. HEPARIN SODIUM 5,000 UNITS IN DEXTROSE 5% [Suspect]
     Indication: STEAL SYNDROME
     Route: 042
     Dates: start: 20070901, end: 20070902
  16. HEPARIN SODIUM 5,000 UNITS IN DEXTROSE 5% [Suspect]
     Route: 042
     Dates: start: 20070902, end: 20070910
  17. HEPARIN SODIUM 5,000 UNITS IN DEXTROSE 5% [Suspect]
     Route: 042
     Dates: start: 20070902, end: 20070910
  18. HEPARIN SODIUM 5,000 UNITS IN DEXTROSE 5% [Suspect]
     Route: 042
     Dates: start: 20070902, end: 20070910
  19. HEPARIN SODIUM 5,000 UNITS IN DEXTROSE 5% [Suspect]
     Route: 042
     Dates: start: 20081026, end: 20081027
  20. HEPARIN SODIUM 5,000 UNITS IN DEXTROSE 5% [Suspect]
     Route: 042
     Dates: start: 20081026, end: 20081027
  21. HEPARIN SODIUM 5,000 UNITS IN DEXTROSE 5% [Suspect]
     Route: 042
     Dates: start: 20081026, end: 20081027
  22. HEPARIN SODIUM 5,000 UNITS IN DEXTROSE 5% [Suspect]
     Route: 058
     Dates: start: 20081027, end: 20081102
  23. HEPARIN SODIUM 5,000 UNITS IN DEXTROSE 5% [Suspect]
     Route: 058
     Dates: start: 20081027, end: 20081102
  24. HEPARIN SODIUM 5,000 UNITS IN DEXTROSE 5% [Suspect]
     Route: 058
     Dates: start: 20081027, end: 20081102
  25. ATORVASTATIN [Concomitant]
     Indication: PRODUCT USED FOR UNKNOWN INDICATION
     Route: 065
  26. CITALOPRAM HYDROBROMIDE [Concomitant]
     Indication: PRODUCT USED FOR UNKNOWN INDICATION
     Route: 065
  27. DOCUSATE [Concomitant]
     Indication: PRODUCT USED FOR UNKNOWN INDICATION
     Route: 065
  28. FELODIPINE [Concomitant]
     Indication: PRODUCT USED FOR UNKNOWN INDICATION
     Route: 065
  29. FERROUS SULFATE [Concomitant]
     Indication: PRODUCT USED FOR UNKNOWN INDICATION
     Route: 065
  30. FLUTICASONE PROPIONATE [Concomitant]
     Indication: PRODUCT USED FOR UNKNOWN INDICATION
     Route: 045
  31. FUROSEMIDE [Concomitant]
     Indication: PRODUCT USED FOR UNKNOWN INDICATION
     Route: 065
  32. GABAPENTIN [Concomitant]
     Indication: PRODUCT USED FOR UNKNOWN INDICATION
     Route: 065
  33. HUMULIN 70/30 [Concomitant]
     Indication: PRODUCT USED FOR UNKNOWN INDICATION
     Route: 065
  34. HUMULIN 70/30 [Concomitant]
     Route: 065
  35. LORATADINE [Concomitant]
     Indication: PRODUCT USED FOR UNKNOWN INDICATION
     Route: 065
  36. METOPROLOL TARTRATE [Concomitant]
     Indication: PRODUCT USED FOR UNKNOWN INDICATION
     Route: 065
  37. NORTRIPTYLINE [Concomitant]
     Indication: PRODUCT USED FOR UNKNOWN INDICATION
     Route: 065
  38. OMEPRAZOLE [Concomitant]
     Indication: PRODUCT USED FOR UNKNOWN INDICATION
     Route: 065
  39. TERIZIDONE [Concomitant]
     Indication: PRODUCT USED FOR UNKNOWN INDICATION
     Route: 065
  40. ANTIBIOTICS [Concomitant]
     Indication: PRODUCT USED FOR UNKNOWN INDICATION
     Route: 065

REACTIONS (19)
  - ABASIA [None]
  - ACUTE MYOCARDIAL INFARCTION [None]
  - ASTHENIA [None]
  - ATRIAL FIBRILLATION [None]
  - CARDIAC ARREST [None]
  - CHEST PAIN [None]
  - CHILLS [None]
  - DIZZINESS [None]
  - DYSPNOEA [None]
  - ELECTROMECHANICAL DISSOCIATION [None]
  - FATIGUE [None]
  - HYPOTENSION [None]
  - HYPOXIA [None]
  - LEUKOCYTOSIS [None]
  - PNEUMOTHORAX [None]
  - PYREXIA [None]
  - RESPIRATORY FAILURE [None]
  - SEPSIS [None]
  - VOMITING [None]
